FAERS Safety Report 21010567 (Version 3)
Quarter: 2022Q3

REPORT INFORMATION
  Report Type: Report from Study
  Country: IN (occurrence: None)
  Receive Date: 20220627
  Receipt Date: 20220705
  Transmission Date: 20221027
  Serious: Yes (Hospitalization)
  Sender: FDA-Public Use
  Company Number: IN-ROCHE-3113220

PATIENT
  Age: 68 Year
  Sex: Female
  Weight: 91.1 kg

DRUGS (9)
  1. POLATUZUMAB VEDOTIN [Suspect]
     Active Substance: POLATUZUMAB VEDOTIN
     Indication: Diffuse large B-cell lymphoma recurrent
     Dosage: MOST RECENT DOSE OF POLATUZUMAB VEDOTIN 169 MG PRIOR TO SAE ONSET: 20/MAY/2022
     Route: 042
     Dates: start: 20220408
  2. RITUXIMAB [Suspect]
     Active Substance: RITUXIMAB
     Indication: Diffuse large B-cell lymphoma recurrent
     Dosage: MOST RECENT DOSE OF RITUXIMAB 733 MG PRIOR TO SAE ONSET: 20/MAY/2022
     Route: 041
     Dates: start: 20220407
  3. GEMCITABINE [Suspect]
     Active Substance: GEMCITABINE
     Indication: Diffuse large B-cell lymphoma recurrent
     Dosage: MOST RECENT DOSE OF GEMCITABINE 2060 MG PRIOR TO SAE ONSET: 21/MAY/2022
     Route: 042
     Dates: start: 20220408
  4. OXALIPLATIN [Suspect]
     Active Substance: OXALIPLATIN
     Indication: Diffuse large B-cell lymphoma recurrent
     Dosage: MOST RECENT DOSE OF OXALIPLATIN 206 MG PRIOR TO SAE ONSET: 21/MAY/2022
     Route: 042
     Dates: start: 20220408
  5. TELMISARTAN [Concomitant]
     Active Substance: TELMISARTAN
     Indication: Hypertension
     Route: 048
  6. MAGNEX INJECTION [Concomitant]
     Indication: Anaemia
     Route: 042
     Dates: start: 20220602, end: 20220606
  7. LEVOFLOXACIN [Concomitant]
     Active Substance: LEVOFLOXACIN
     Indication: Renal impairment
     Route: 042
     Dates: start: 20220602, end: 20220603
  8. MEROPENEM [Concomitant]
     Active Substance: MEROPENEM
     Indication: Anaemia
     Route: 042
     Dates: start: 20220603, end: 20220606
  9. TAXIM O [Concomitant]
     Indication: Renal impairment
     Route: 048
     Dates: start: 20220608, end: 20220609

REACTIONS (2)
  - Renal impairment [Recovered/Resolved]
  - Anaemia [Recovered/Resolved]

NARRATIVE: CASE EVENT DATE: 20220602
